FAERS Safety Report 5452621-5 (Version None)
Quarter: 2007Q3

REPORT INFORMATION
  Report Type: 
  Country: None (occurrence: None)
  Receive Date: 20070914
  Receipt Date: 20070912
  Transmission Date: 20080115
  Serious: Yes (Death, Other)
  Sender: FDA-Public Use
  Company Number: DE-BRISTOL-MYERS SQUIBB COMPANY-13905138

PATIENT

DRUGS (4)
  1. IFOSFAMIDE [Suspect]
     Indication: EWING'S SARCOMA
  2. DOXORUBICIN HCL [Suspect]
     Indication: EWING'S SARCOMA
  3. ETOPOSIDE [Suspect]
     Indication: EWING'S SARCOMA
  4. VINCRISTINE [Suspect]
     Indication: EWING'S SARCOMA

REACTIONS (10)
  - BONE MARROW FAILURE [None]
  - CARDIOTOXICITY [None]
  - DEATH [None]
  - FEBRILE NEUTROPENIA [None]
  - HAEMATOTOXICITY [None]
  - INFECTION [None]
  - NEPHROPATHY TOXIC [None]
  - SEPSIS [None]
  - STOMATITIS [None]
  - VOMITING [None]
